FAERS Safety Report 6737567-4 (Version None)
Quarter: 2010Q2

REPORT INFORMATION
  Report Type: 
  Country: None (occurrence: None)
  Receive Date: 20100521
  Receipt Date: 20100521
  Transmission Date: 20101027
  Serious: Yes (Life-Threatening, Other)
  Sender: FDA-Public Use
  Company Number: None

PATIENT
  Age: 67 Year
  Sex: Female
  Weight: 68.4932 kg

DRUGS (1)
  1. DYSPORT [Suspect]
     Indication: SKIN COSMETIC PROCEDURE
     Dates: start: 20100426, end: 20100426

REACTIONS (10)
  - ASTHENIA [None]
  - DIZZINESS [None]
  - HEADACHE [None]
  - IMPAIRED DRIVING ABILITY [None]
  - MALAISE [None]
  - NAUSEA [None]
  - NERVOUS SYSTEM DISORDER [None]
  - SINUSITIS [None]
  - SYNCOPE [None]
  - VISION BLURRED [None]
